FAERS Safety Report 7419043-9 (Version None)
Quarter: 2011Q2

REPORT INFORMATION
  Report Type: 
  Country: None (occurrence: None)
  Receive Date: 20110415
  Receipt Date: 20110413
  Transmission Date: 20111010
  Serious: Yes (Other)
  Sender: FDA-Public Use
  Company Number: PT-PFIZER INC-2011081819

PATIENT
  Sex: Male

DRUGS (2)
  1. RISPERIDONE [Concomitant]
  2. ZELDOX [Suspect]
     Route: 048

REACTIONS (1)
  - OEDEMA [None]
